FAERS Safety Report 6824918-5 (Version None)
Quarter: 2010Q3

REPORT INFORMATION
  Report Type: 
  Country: None (occurrence: None)
  Receive Date: 20100708
  Receipt Date: 20061129
  Transmission Date: 20110219
  Serious: No
  Sender: FDA-Public Use
  Company Number: US-PFIZER INC-2006147886

PATIENT
  Sex: Female
  Weight: 29.03 kg

DRUGS (6)
  1. CHANTIX [Suspect]
     Indication: SMOKING CESSATION THERAPY
     Dates: start: 20061101, end: 20061115
  2. PROMETHAZINE [Suspect]
     Indication: NAUSEA
     Dates: start: 20061101
  3. PROMETHAZINE [Suspect]
     Indication: VOMITING
  4. VICODIN ES [Concomitant]
  5. EFFEXOR XR [Concomitant]
  6. RED YEAST RICE [Concomitant]
     Indication: BLOOD CHOLESTEROL INCREASED

REACTIONS (3)
  - FATIGUE [None]
  - NAUSEA [None]
  - VOMITING [None]
